FAERS Safety Report 5731850-7 (Version None)
Quarter: 2008Q2

REPORT INFORMATION
  Report Type: 
  Country: None (occurrence: None)
  Receive Date: 20080508
  Receipt Date: 20080428
  Transmission Date: 20081010
  Serious: Yes (Death, Hospitalization)
  Sender: FDA-Public Use
  Company Number: B0518732A

PATIENT
  Age: 83 Year
  Sex: Male

DRUGS (5)
  1. ARIXTRA [Suspect]
     Indication: PHLEBITIS
     Route: 058
     Dates: start: 20080124, end: 20080207
  2. PLAVIX [Suspect]
     Indication: DRUG USE FOR UNKNOWN INDICATION
     Route: 048
     Dates: end: 20080207
  3. SERTRALINE [Suspect]
     Route: 048
     Dates: end: 20080207
  4. VITAMIN E [Concomitant]
     Indication: DRUG USE FOR UNKNOWN INDICATION
     Route: 048
     Dates: end: 20080207
  5. GINKGO BILOBA [Concomitant]
     Route: 048
     Dates: end: 20080207

REACTIONS (4)
  - BRAIN HERNIATION [None]
  - CEREBRAL HAEMATOMA [None]
  - CEREBRAL HAEMORRHAGE [None]
  - HAEMATOMA [None]
